FAERS Safety Report 7795405-5 (Version None)
Quarter: 2011Q3

REPORT INFORMATION
  Report Type: 
  Country: None (occurrence: None)
  Receive Date: 20110930
  Receipt Date: 20110919
  Transmission Date: 20111222
  Serious: Yes (Other)
  Sender: FDA-Public Use
  Company Number: 2011CP000154

PATIENT
  Age: 55 Year
  Sex: Female

DRUGS (6)
  1. DURAGESIC-100 [Concomitant]
  2. MORPHINE SULFATE [Concomitant]
  3. ACETAMINOPHEN [Suspect]
     Indication: SCIATICA
     Dosage: 4 GRAM; 1 DAY;IV
     Route: 042
     Dates: start: 20110623, end: 20110624
  4. CODEINE PHOSPHATE AND ACETAMINOPHEN [Suspect]
     Dosage: 1 DOSAGE FORM;1 DAY;
     Dates: start: 20110527
  5. KETOPROFEN [Suspect]
     Dosage: 100 MG;2/1 DAY;IV
     Route: 042
     Dates: start: 20110623, end: 20110624
  6. TRAMADOL HCL [Concomitant]

REACTIONS (2)
  - CYTOLYTIC HEPATITIS [None]
  - HEPATOCELLULAR INJURY [None]
